FAERS Safety Report 4906860-X (Version None)
Quarter: 2006Q1

REPORT INFORMATION
  Report Type: 
  Country: None (occurrence: None)
  Receive Date: 20060207
  Receipt Date: 20060124
  Transmission Date: 20060701
  Serious: Yes (Other)
  Sender: FDA-Public Use
  Company Number: A-CH2005-09599

PATIENT
  Age: 39 Year
  Sex: Male

DRUGS (6)
  1. TRACLEER [Suspect]
     Indication: PULMONARY HYPERTENSION
     Dosage: SEE IMAGE
     Route: 048
     Dates: start: 20030615, end: 20030701
  2. TRACLEER [Suspect]
     Indication: PULMONARY HYPERTENSION
     Dosage: SEE IMAGE
     Route: 048
     Dates: start: 20030701
  3. CRIXIVAN [Suspect]
     Indication: HIV TEST POSITIVE
     Dosage: SEE IMAGE
     Dates: start: 20030201, end: 20030401
  4. CRIXIVAN [Suspect]
     Indication: HIV TEST POSITIVE
     Dosage: SEE IMAGE
     Dates: end: 20030701
  5. CRIXIVAN [Suspect]
     Indication: HIV TEST POSITIVE
     Dosage: SEE IMAGE
     Dates: start: 20030701, end: 20030901
  6. CRIXIVAN [Suspect]
     Indication: HIV TEST POSITIVE
     Dosage: SEE IMAGE
     Dates: start: 20030901

REACTIONS (3)
  - DRUG INTERACTION [None]
  - DRUG LEVEL DECREASED [None]
  - LACTIC ACIDOSIS [None]
